FAERS Safety Report 20385702 (Version 1)
Quarter: 2022Q1

REPORT INFORMATION
  Report Type: Other
  Country: US (occurrence: US)
  Receive Date: 20220127
  Receipt Date: 20220127
  Transmission Date: 20220424
  Serious: Yes (Death, Hospitalization)
  Sender: FDA-Public Use
  Company Number: US-Osmotica_Pharmaceutical_US_LLC-POI0573202200033

PATIENT
  Age: 16 Year
  Sex: Male

DRUGS (1)
  1. METHYLPHENIDATE HYDROCHLORIDE [Suspect]
     Active Substance: METHYLPHENIDATE HYDROCHLORIDE
     Indication: Product used for unknown indication
     Dates: end: 2020

REACTIONS (3)
  - Cardiac arrest [Fatal]
  - Brain injury [Fatal]
  - Drug abuse [Fatal]

NARRATIVE: CASE EVENT DATE: 20200101
